FAERS Safety Report 7339671-9 (Version None)
Quarter: 2011Q1

REPORT INFORMATION
  Report Type: 
  Country: None (occurrence: None)
  Receive Date: 20110308
  Receipt Date: 20110118
  Transmission Date: 20110831
  Serious: No
  Sender: FDA-Public Use
  Company Number: US-B.I. PHARMACEUTICALS,INC./RIDGEFIELD-2011-BP-03720BP

PATIENT
  Sex: Female

DRUGS (2)
  1. PRADAXA [Suspect]
  2. MULTAQ [Suspect]

REACTIONS (4)
  - MEMORY IMPAIRMENT [None]
  - FEELING ABNORMAL [None]
  - HYPERSOMNIA [None]
  - DIARRHOEA [None]
